FAERS Safety Report 23994853 (Version 1)
Quarter: 2024Q2

REPORT INFORMATION
  Report Type: Spontaneous
  Country: GR (occurrence: GR)
  Receive Date: 20240620
  Receipt Date: 20240620
  Transmission Date: 20240716
  Serious: Yes (Death, Hospitalization)
  Sender: FDA-Public Use
  Company Number: GR-PFIZER INC-PV202400079545

PATIENT
  Age: 95 Year
  Sex: Female

DRUGS (1)
  1. VYNDAQEL [Suspect]
     Active Substance: TAFAMIDIS MEGLUMINE
     Indication: Hereditary neuropathic amyloidosis
     Dosage: 20 MG, DAILY
     Route: 048

REACTIONS (2)
  - Infected skin ulcer [Fatal]
  - Sepsis [Fatal]
